FAERS Safety Report 22388795 (Version 1)
Quarter: 2023Q2

REPORT INFORMATION
  Report Type: Spontaneous
  Country: US (occurrence: None)
  Receive Date: 20230530
  Receipt Date: 20230530
  Transmission Date: 20230721
  Serious: Yes (Hospitalization, Disabling)
  Sender: FDA-Public Use
  Company Number: None

PATIENT
  Age: 55 Year
  Sex: Female
  Weight: 76.5 kg

DRUGS (1)
  1. PAXLOVID [Suspect]
     Active Substance: NIRMATRELVIR\RITONAVIR
     Indication: COVID-19
     Dates: start: 20230512, end: 20230517

REACTIONS (4)
  - Lip swelling [None]
  - Throat tightness [None]
  - Swelling face [None]
  - Mouth swelling [None]

NARRATIVE: CASE EVENT DATE: 20230517
